FAERS Safety Report 7162881-0 (Version None)
Quarter: 2010Q4

REPORT INFORMATION
  Report Type: 
  Country: None (occurrence: None)
  Receive Date: 20101215
  Receipt Date: 20100114
  Transmission Date: 20110411
  Serious: Yes (Other)
  Sender: FDA-Public Use
  Company Number: CA-PFIZER INC-2010005572

PATIENT
  Sex: Female

DRUGS (2)
  1. LYRICA [Suspect]
     Indication: FIBROMYALGIA
     Dosage: 300 MG, UNK
     Dates: start: 20090101
  2. LYRICA [Suspect]
     Dosage: 50 MG, UNK
     Dates: start: 20081227

REACTIONS (4)
  - ABDOMINAL DISCOMFORT [None]
  - BLADDER DISORDER [None]
  - HIATUS HERNIA [None]
  - OESOPHAGEAL PERFORATION [None]
